FAERS Safety Report 7272684-4 (Version None)
Quarter: 2010Q4

REPORT INFORMATION
  Report Type: 
  Country: None (occurrence: None)
  Receive Date: 20101206
  Receipt Date: 20101005
  Transmission Date: 20110411
  Serious: No
  Sender: FDA-Public Use
  Company Number: 2010SP053339

PATIENT
  Age: 50 Year
  Sex: Male

DRUGS (3)
  1. SAPHRIS [Suspect]
     Indication: MAJOR DEPRESSION
     Dosage: 5 MG;BID;SL
     Route: 060
  2. EFFEXOR [Concomitant]
  3. TRAZODONE [Concomitant]

REACTIONS (1)
  - MOUTH ULCERATION [None]
